FAERS Safety Report 25096376 (Version 2)
Quarter: 2025Q2

REPORT INFORMATION
  Report Type: Spontaneous
  Country: US (occurrence: US)
  Receive Date: 20250319
  Receipt Date: 20250409
  Transmission Date: 20250717
  Serious: No
  Sender: PFIZER
  Company Number: US-PFIZER INC-202500060301

PATIENT
  Sex: Female
  Weight: 90.7 kg

DRUGS (12)
  1. METHOTREXATE SODIUM [Suspect]
     Active Substance: METHOTREXATE SODIUM
     Indication: Rheumatoid arthritis
     Route: 065
     Dates: start: 2016, end: 202206
  2. PLAQUENIL [Concomitant]
     Active Substance: HYDROXYCHLOROQUINE SULFATE
     Dosage: 400 MILLIGRAM, QD
     Route: 065
     Dates: start: 2016, end: 202309
  3. TYMLOS [Concomitant]
     Active Substance: ABALOPARATIDE
     Route: 065
  4. AMOXIL [Concomitant]
     Active Substance: AMOXICILLIN
     Route: 065
  5. CIPRO [Concomitant]
     Active Substance: CIPROFLOXACIN HYDROCHLORIDE
     Route: 065
  6. NITROSTAT [Concomitant]
     Active Substance: NITROGLYCERIN
     Route: 065
  7. VESICARE [Concomitant]
     Active Substance: SOLIFENACIN SUCCINATE
     Route: 065
  8. ULTRAM [Concomitant]
     Active Substance: TRAMADOL HYDROCHLORIDE
     Route: 065
  9. ARAVA [Concomitant]
     Active Substance: LEFLUNOMIDE
     Dosage: 10 MG, 1X/DAY
     Route: 065
     Dates: start: 202210, end: 202306
  10. ARAVA [Concomitant]
     Active Substance: LEFLUNOMIDE
     Dosage: 20 MG, 1X/DAY
     Route: 065
  11. MODERNA COVID-19 VACCINE [Concomitant]
     Active Substance: ELASOMERAN
     Route: 065
  12. MODERNA COVID-19 VACCINE [Concomitant]
     Active Substance: ELASOMERAN
     Route: 065

REACTIONS (2)
  - Fatigue [Unknown]
  - Dizziness [Unknown]
